FAERS Safety Report 23985714 (Version 1)
Quarter: 2024Q2

REPORT INFORMATION
  Report Type: Spontaneous
  Country: US (occurrence: US)
  Receive Date: 20240618
  Receipt Date: 20240618
  Transmission Date: 20240716
  Serious: Yes (Other)
  Sender: FDA-Public Use
  Company Number: US-PFIZER INC-PV202400078017

PATIENT
  Age: 80 Year
  Sex: Female

DRUGS (7)
  1. NURTEC ODT [Suspect]
     Active Substance: RIMEGEPANT SULFATE
     Indication: Migraine
     Dosage: TAKE 1 TABLET BY MOUTH DAILY AS NEEDED; MAX 1 TABLET PER DAY.
     Route: 048
     Dates: start: 2024
  2. LEVOTHYROXINE [Suspect]
     Active Substance: LEVOTHYROXINE\LEVOTHYROXINE SODIUM
     Dosage: UNK
  3. EMGALITY [Suspect]
     Active Substance: GALCANEZUMAB-GNLM
     Indication: Migraine
     Dosage: UNK
  4. OMEPRAZOLE [Suspect]
     Active Substance: DONEPEZIL HYDROCHLORIDE\OMEPRAZOLE\OMEPRAZOLE MAGNESIUM
     Dosage: UNK
  5. ESTROGENS [Suspect]
     Active Substance: ESTROGENS
     Dosage: UNK
     Route: 061
  6. TACROLIMUS [Suspect]
     Active Substance: TACROLIMUS
     Dosage: UNK
     Route: 061
  7. KETOCONAZOLE [Suspect]
     Active Substance: KETOCONAZOLE
     Dosage: UNK
     Route: 061

REACTIONS (3)
  - Transient ischaemic attack [Unknown]
  - Hypertension [Unknown]
  - Aneurysm [Unknown]

NARRATIVE: CASE EVENT DATE: 20240609
